FAERS Safety Report 6003076-3 (Version None)
Quarter: 2008Q4

REPORT INFORMATION
  Report Type: 
  Country: None (occurrence: None)
  Receive Date: 20081216
  Receipt Date: 20081209
  Transmission Date: 20090506
  Serious: Yes (Hospitalization)
  Sender: FDA-Public Use
  Company Number: JP-SP-2008-03668

PATIENT
  Age: 70 Year
  Sex: Female

DRUGS (1)
  1. IMMUCYST [Suspect]
     Indication: BLADDER CANCER
     Route: 043
     Dates: start: 20080926, end: 20081107

REACTIONS (3)
  - ARTHRALGIA [None]
  - PYREXIA [None]
  - REITER'S SYNDROME [None]
